FAERS Safety Report 8852132 (Version 6)
Quarter: 2015Q3

REPORT INFORMATION
  Report Type: Spontaneous
  Country: US (occurrence: US)
  Receive Date: 20121022
  Receipt Date: 20150709
  Transmission Date: 20151125
  Serious: Yes (Other)
  Sender: FDA-Public Use
  Company Number: US-009507513-1210USA005122

PATIENT
  Sex: Female
  Weight: 57.14 kg

DRUGS (6)
  1. LISINOPRIL. [Concomitant]
     Active Substance: LISINOPRIL
     Indication: HYPERTENSION
     Dosage: UNK
     Route: 065
     Dates: start: 1992
  2. PREMPRO [Concomitant]
     Active Substance: ESTROGENS, CONJUGATED\MEDROXYPROGESTERONE ACETATE
     Indication: HORMONE REPLACEMENT THERAPY
     Dosage: UNK
     Route: 065
     Dates: start: 2000
  3. HYDROCHLOROTHIAZIDE. [Concomitant]
     Active Substance: HYDROCHLOROTHIAZIDE
     Indication: HYPERTENSION
     Dosage: UNK
     Route: 065
     Dates: start: 1992
  4. FOSAMAX [Suspect]
     Active Substance: ALENDRONATE SODIUM
     Indication: OSTEOPOROSIS
     Dosage: 70 MG, QW
     Route: 048
     Dates: start: 20050821, end: 20080113
  5. FOSAMAX [Suspect]
     Active Substance: ALENDRONATE SODIUM
     Dosage: UNK
     Route: 048
     Dates: end: 20101019
  6. ALENDRONATE SODIUM. [Suspect]
     Active Substance: ALENDRONATE SODIUM
     Dosage: 70 MG, ONCE WEEKLY
     Route: 048
     Dates: start: 20080212, end: 20101012

REACTIONS (22)
  - Rotator cuff repair [Unknown]
  - Cartilage injury [Unknown]
  - Arthroscopy [Unknown]
  - Intervertebral disc degeneration [Unknown]
  - Femur fracture [Unknown]
  - Rheumatoid arthritis [Unknown]
  - Ligament sprain [Unknown]
  - Acetabulum fracture [Recovered/Resolved]
  - Cartilage injury [Unknown]
  - Osteoarthritis [Unknown]
  - Removal of foreign body from joint [Unknown]
  - Femoroacetabular impingement [Unknown]
  - Joint swelling [Unknown]
  - Tenosynovitis [Unknown]
  - Osteochondrosis [Unknown]
  - Limb operation [Unknown]
  - Cyst [Unknown]
  - Lower limb fracture [Unknown]
  - Arthropathy [Unknown]
  - Spinal osteoarthritis [Unknown]
  - Intervertebral disc protrusion [Unknown]
  - Tendon injury [Unknown]

NARRATIVE: CASE EVENT DATE: 20101006
